FAERS Safety Report 6483471-9 (Version None)
Quarter: 2009Q4

REPORT INFORMATION
  Report Type: 
  Country: None (occurrence: None)
  Receive Date: 20091123
  Receipt Date: 20090730
  Transmission Date: 20100525
  Serious: No
  Sender: FDA-Public Use
  Company Number: 8049708

PATIENT
  Age: 38 Year
  Sex: Female
  Weight: 74 kg

DRUGS (3)
  1. CIMZIA [Suspect]
     Dosage: 400 MG
  2. PREDNISONE TAB [Concomitant]
  3. ASACOL [Concomitant]

REACTIONS (2)
  - THROAT IRRITATION [None]
  - URTICARIA [None]
